FAERS Safety Report 10931041 (Version 1)
Quarter: 2015Q1

REPORT INFORMATION
  Report Type: Spontaneous
  Country: US (occurrence: None)
  Receive Date: 20150225
  Receipt Date: 20150225
  Transmission Date: 20150721
  Serious: Yes (Hospitalization)
  Sender: FDA-Public Use
  Company Number: 2014-US-012262

PATIENT
  Age: 28 Year
  Sex: Male

DRUGS (9)
  1. CYMBALTA [Suspect]
     Active Substance: DULOXETINE HYDROCHLORIDE
  2. HYDROXYZINE HCL (HYDROXYZINE HYDROCHLORIDE) [Concomitant]
  3. PRIALT [Suspect]
     Active Substance: ZICONOTIDE ACETATE
     Indication: SPINAL PAIN
     Dosage: UNK, UG, QH, INTRATHECAL
     Route: 037
     Dates: start: 2014, end: 20140710
  4. PRIALT [Suspect]
     Active Substance: ZICONOTIDE ACETATE
     Indication: ARACHNOIDITIS
     Dosage: UNK, UG, QH, INTRATHECAL
     Route: 037
     Dates: start: 2014, end: 20140710
  5. XANAX [Concomitant]
     Active Substance: ALPRAZOLAM
  6. NAPROXEN. [Concomitant]
     Active Substance: NAPROXEN
  7. GABAPENTIN. [Concomitant]
     Active Substance: GABAPENTIN
  8. PRIALT [Suspect]
     Active Substance: ZICONOTIDE ACETATE
     Indication: PAIN
     Dosage: UNK, UG, QH, INTRATHECAL
     Route: 037
     Dates: start: 2014, end: 20140710
  9. ROBAXIN (METHOCARBAMOL) [Concomitant]

REACTIONS (1)
  - Pain [None]

NARRATIVE: CASE EVENT DATE: 201409
